FAERS Safety Report 18507479 (Version 4)
Quarter: 2022Q1

REPORT INFORMATION
  Report Type: Report from Study
  Country: FR (occurrence: FR)
  Receive Date: 20201116
  Receipt Date: 20220112
  Transmission Date: 20220424
  Serious: Yes (Hospitalization, Other)
  Sender: FDA-Public Use
  Company Number: NVSC2020FR299872

PATIENT
  Age: 58 Year
  Sex: Female
  Weight: 76 kg

DRUGS (26)
  1. NILOTINIB [Suspect]
     Active Substance: NILOTINIB
     Indication: Acute lymphocytic leukaemia
     Dosage: 800 MG PER DAY
     Route: 048
     Dates: start: 20200928, end: 20201102
  2. NILOTINIB [Suspect]
     Active Substance: NILOTINIB
     Dosage: 600 MG, UNK
     Route: 048
     Dates: start: 20201105
  3. VINCRISTINE [Concomitant]
     Active Substance: VINCRISTINE
     Indication: Chemotherapy
     Dosage: 2 MG, UNK
     Route: 042
     Dates: start: 20200928
  4. METHOTREXATE [Concomitant]
     Active Substance: METHOTREXATE
     Indication: Chemotherapy
     Dosage: 15 MG, UNK
     Route: 037
     Dates: start: 20200923
  5. CYTARABINE [Concomitant]
     Active Substance: CYTARABINE
     Indication: Chemotherapy
     Dosage: 40 MG, UNK
     Route: 037
     Dates: start: 20200928
  6. FUROSEMIDE [Concomitant]
     Active Substance: FUROSEMIDE
     Indication: Prophylaxis
     Dosage: 20 MG, UNK
     Route: 042
     Dates: start: 20200924, end: 20201005
  7. PRIMPERAN [Concomitant]
     Active Substance: METOCLOPRAMIDE HYDROCHLORIDE
     Indication: Nausea
     Dosage: 10.0 MG, UNK
     Route: 042
     Dates: start: 20200928, end: 20201004
  8. MORPHINE [Concomitant]
     Active Substance: MORPHINE
     Indication: Oesophageal ulcer
     Dosage: 24.0 MG, UNK
     Route: 042
     Dates: start: 20201002, end: 20201120
  9. PHLOROGLUCINOL [Concomitant]
     Active Substance: PHLOROGLUCINOL
     Indication: Oesophageal ulcer
     Dosage: 120.0 MG, UNK
     Route: 042
     Dates: start: 20201015, end: 20201103
  10. PIPERACILLIN SODIUM\TAZOBACTAM SODIUM [Concomitant]
     Active Substance: PIPERACILLIN SODIUM\TAZOBACTAM SODIUM
     Indication: Product used for unknown indication
     Dosage: 12.0 MG
     Route: 042
     Dates: start: 20200921, end: 20201022
  11. ESOMEPRAZOLE [Concomitant]
     Active Substance: ESOMEPRAZOLE
     Indication: Oesophageal ulcer
     Dosage: 160.0 MG, UNK
     Route: 042
     Dates: start: 20201016, end: 20201019
  12. REFRESH CELLUVISC [Concomitant]
     Active Substance: CARBOXYMETHYLCELLULOSE SODIUM
     Indication: Prophylaxis
     Dosage: UNK
     Route: 031
     Dates: start: 20201012
  13. BROMAZEPAM [Concomitant]
     Active Substance: BROMAZEPAM
     Indication: Anxiety
     Dosage: 3.0 MG, UNK
     Route: 048
     Dates: start: 20200918
  14. POLYETHYLENE GLYCOL 4000 [Concomitant]
     Active Substance: POLYETHYLENE GLYCOL 4000
     Indication: Constipation
     Dosage: UNK
     Route: 048
     Dates: start: 20201001, end: 20201005
  15. DEXAMETHASONE [Concomitant]
     Active Substance: DEXAMETHASONE
     Indication: Chemotherapy
     Dosage: 40.0 MG, UNK
     Route: 048
     Dates: start: 20200928
  16. PREDNISOLONE [Concomitant]
     Active Substance: PREDNISOLONE
     Indication: Chemotherapy
     Dosage: 120 MG, UNK
     Route: 065
     Dates: start: 20200923
  17. LENOGRASTIM [Concomitant]
     Active Substance: LENOGRASTIM
     Indication: Aplasia
     Dosage: 34.0 UNK, UNK
     Route: 042
     Dates: start: 20201013, end: 20201022
  18. GAVISCON [Concomitant]
     Active Substance: ALUMINUM HYDROXIDE\MAGNESIUM CARBONATE
     Indication: Abdominal pain upper
     Dosage: UNK
     Route: 048
     Dates: start: 20201014, end: 20201022
  19. ALLOPURINOL [Concomitant]
     Active Substance: ALLOPURINOL
     Indication: Prophylaxis
     Dosage: 300.0 MG, UNK
     Route: 048
     Dates: start: 20200919, end: 20201005
  20. BACTRIM [Concomitant]
     Active Substance: SULFAMETHOXAZOLE\TRIMETHOPRIM
     Indication: Prophylaxis
     Dosage: UNK
     Route: 048
     Dates: start: 20200918
  21. DULOXETINE [Concomitant]
     Active Substance: DULOXETINE
     Indication: Anxiety
     Dosage: 60.0 MG, UNK
     Route: 048
     Dates: start: 20200918
  22. LEVOTHYROXINE [Concomitant]
     Active Substance: LEVOTHYROXINE
     Indication: Hypothyroidism
     Dosage: 87.5 UG, UNK
     Route: 048
  23. PANTOPRAZOLE [Concomitant]
     Active Substance: PANTOPRAZOLE
     Indication: Prophylaxis
     Dosage: 40.0 MG, UNK
     Route: 048
     Dates: start: 20200921, end: 20201016
  24. SODIUM BICARBONATE [Concomitant]
     Active Substance: SODIUM BICARBONATE
     Indication: Prophylaxis
     Dosage: UNK
     Route: 065
     Dates: start: 20200918
  25. EUPANTOL [Concomitant]
     Active Substance: PANTOPRAZOLE SODIUM
     Indication: Prophylaxis
     Dosage: 40 MG, UNK
     Route: 048
     Dates: start: 20200921, end: 20201016
  26. VALACYCLOVIR HYDROCHLORIDE [Concomitant]
     Active Substance: VALACYCLOVIR HYDROCHLORIDE
     Indication: Prophylaxis
     Dosage: 1000.0 MG, UNK
     Route: 048
     Dates: start: 20200918

REACTIONS (3)
  - Oesophageal ulcer [Recovered/Resolved]
  - Oesophageal candidiasis [Recovered/Resolved]
  - Thrombosis [Recovered/Resolved with Sequelae]

NARRATIVE: CASE EVENT DATE: 20201023
